FAERS Safety Report 6791304-6 (Version None)
Quarter: 2010Q2

REPORT INFORMATION
  Report Type: 
  Country: None (occurrence: None)
  Receive Date: 20100624
  Receipt Date: 20100614
  Transmission Date: 20101027
  Serious: Yes (Hospitalization)
  Sender: FDA-Public Use
  Company Number: US-PFIZER INC-2010074670

PATIENT
  Sex: Female

DRUGS (19)
  1. ADRIAMYCIN PFS [Suspect]
     Indication: ENDOMETRIAL CANCER
     Dosage: 120 MG, CYCLIC
     Route: 042
     Dates: start: 20100525
  2. ATIVAN [Concomitant]
     Dosage: UNK
     Dates: start: 20100420
  3. COLACE [Concomitant]
     Dosage: UNK
     Dates: start: 20080101
  4. AMBIEN [Concomitant]
     Dosage: UNK
     Dates: start: 20090101
  5. PERCOCET [Concomitant]
     Dosage: UNK
     Dates: start: 20080101
  6. WARFARIN SODIUM [Concomitant]
     Dosage: UNK
     Dates: start: 20080101
  7. TRICOR [Concomitant]
     Dosage: UNK
     Dates: start: 20040101
  8. SITAGLIPTIN PHOSPHATE [Concomitant]
     Dosage: UNK
     Dates: start: 20080101
  9. AMLODIPINE/VALSARTAN [Concomitant]
     Dosage: UNK
     Dates: start: 20070101
  10. SYNTHROID [Concomitant]
     Dosage: UNK
     Dates: start: 20060101
  11. LOVAZA [Concomitant]
     Dosage: UNK
     Dates: start: 20050101
  12. MULTIPLE VITAMINS [Concomitant]
     Dosage: UNK
     Dates: start: 20020101
  13. METOPROLOL [Concomitant]
     Dosage: UNK
     Dates: start: 20080101
  14. ALENDRONATE SODIUM [Concomitant]
     Dosage: UNK
     Dates: start: 20050101
  15. CLARITIN [Concomitant]
     Dosage: UNK
     Dates: start: 20040101
  16. VITAMIN D [Concomitant]
     Dosage: UNK
     Dates: start: 20050101
  17. TESSALON [Concomitant]
     Dosage: UNK
     Dates: start: 20100511
  18. ADVAIR DISKUS 100/50 [Concomitant]
     Dosage: UNK
     Dates: start: 20100511
  19. MEGACE [Concomitant]
     Dosage: UNK
     Dates: start: 20100521

REACTIONS (3)
  - INTERNATIONAL NORMALISED RATIO INCREASED [None]
  - NEUTROPENIA [None]
  - PNEUMONIA [None]
